FAERS Safety Report 5989193-2 (Version None)
Quarter: 2008Q4

REPORT INFORMATION
  Report Type: 
  Country: None (occurrence: None)
  Receive Date: 20081205
  Receipt Date: 20081121
  Transmission Date: 20090506
  Serious: Yes (Other)
  Sender: FDA-Public Use
  Company Number: ADE2008-0393

PATIENT
  Age: 60 Year
  Sex: Female

DRUGS (6)
  1. PAROXETINE HCL [Suspect]
     Indication: DEPRESSION
  2. FENTANYL-100 [Suspect]
     Indication: ANAESTHESIA
     Dosage: 200-800UG IV
     Route: 042
  3. ISOFLURANE [Concomitant]
  4. PROPOFOL [Concomitant]
  5. LEVOTHYROXINE SODIUM [Concomitant]
  6. ATRACURIUM BESYLATE [Concomitant]

REACTIONS (7)
  - AGITATION [None]
  - CLONUS [None]
  - DRUG TOXICITY [None]
  - HYPERREFLEXIA [None]
  - HYPERTENSION [None]
  - HYPERTONIA [None]
  - INDIFFERENCE [None]
